FAERS Safety Report 18144256 (Version 1)
Quarter: 2020Q3

REPORT INFORMATION
  Report Type: Spontaneous
  Country: US (occurrence: US)
  Receive Date: 20200812
  Receipt Date: 20200812
  Transmission Date: 20201103
  Serious: Yes (Hospitalization)
  Sender: FDA-Public Use
  Company Number: None

PATIENT
  Age: 73 Year
  Sex: Female
  Weight: 119 kg

DRUGS (13)
  1. DUO?NEB [Concomitant]
     Dates: start: 20200807
  2. VENLAFAXINE [Concomitant]
     Active Substance: VENLAFAXINE HYDROCHLORIDE
     Dates: start: 20200811
  3. METHYLPREDNISOLONE. [Concomitant]
     Active Substance: METHYLPREDNISOLONE
     Dates: start: 20200810
  4. FAMOTIDINE. [Concomitant]
     Active Substance: FAMOTIDINE
     Dates: start: 20200808
  5. PROPOFOL. [Concomitant]
     Active Substance: PROPOFOL
     Dates: start: 20200810
  6. QUETIAPINE. [Concomitant]
     Active Substance: QUETIAPINE
     Dates: start: 20200809
  7. REMDESIVIR. [Suspect]
     Active Substance: REMDESIVIR
     Indication: COVID-19
     Route: 040
     Dates: start: 20200807, end: 20200812
  8. SYMBICORT [Concomitant]
     Active Substance: BUDESONIDE\FORMOTEROL FUMARATE DIHYDRATE
     Dates: start: 20200806
  9. NIMBEX [Concomitant]
     Active Substance: CISATRACURIUM BESYLATE
     Dates: start: 20200810
  10. VITAMIN D [Concomitant]
     Active Substance: VITAMIN D NOS
     Dates: start: 20200810
  11. LOVENOX [Concomitant]
     Active Substance: ENOXAPARIN SODIUM
     Dates: start: 20200807
  12. FENTANYL. [Concomitant]
     Active Substance: FENTANYL
     Dates: start: 20200812
  13. ZINC SULFATE. [Concomitant]
     Active Substance: ZINC SULFATE
     Dates: start: 20200806

REACTIONS (2)
  - Creatinine renal clearance increased [None]
  - Blood creatinine increased [None]

NARRATIVE: CASE EVENT DATE: 20200812
